FAERS Safety Report 8589603-0 (Version None)
Quarter: 2012Q3

REPORT INFORMATION
  Report Type: 
  Country: None (occurrence: None)
  Receive Date: 20120813
  Receipt Date: 20120806
  Transmission Date: 20120928
  Serious: Yes (Hospitalization, Disabling)
  Sender: FDA-Public Use
  Company Number: IL-ROCHE-1044899

PATIENT
  Sex: Female

DRUGS (5)
  1. LEVOTHYROXINE SODIUM [Concomitant]
     Indication: HYPOTHYROIDISM
     Route: 048
     Dates: start: 20110915
  2. BETACORTEN [Concomitant]
     Indication: DRY SKIN
     Dosage: DAILY
     Route: 061
     Dates: start: 20111211
  3. PEGASYS [Suspect]
     Indication: HEPATITIS C
     Dosage: DATE OF LAST DOSE PRIOR TO SAE: 20/FEB/2012
     Route: 065
     Dates: start: 20110327, end: 20120220
  4. COPEGUS [Suspect]
     Indication: HEPATITIS C
     Dosage: DATE OF LAST DOSE PRIOR TO SAE: 20/FEB/2012
     Route: 065
     Dates: start: 20110327, end: 20120220
  5. BRIMONIDINE TARTRATE [Concomitant]
     Indication: GLAUCOMA
     Dosage: PUFF
     Route: 031
     Dates: start: 20110901

REACTIONS (2)
  - NEUROPATHY PERIPHERAL [None]
  - CRYOGLOBULINAEMIA [None]
